FAERS Safety Report 10243913 (Version 5)
Quarter: 2014Q4

REPORT INFORMATION
  Report Type: Report from Study
  Country: IT (occurrence: IT)
  Receive Date: 20140618
  Receipt Date: 20141001
  Transmission Date: 20150528
  Serious: Yes (Death, Hospitalization, Other)
  Sender: FDA-Public Use
  Company Number: IT-SA-CLOF-1002248

PATIENT
  Age: 17 Year
  Sex: Female
  Weight: 40 kg

DRUGS (3)
  1. ETOPOSIDE. [Suspect]
     Active Substance: ETOPOSIDE
     Indication: ACUTE LYMPHOCYTIC LEUKAEMIA RECURRENT
     Dosage: 100 MG/M2, QD
     Route: 065
     Dates: start: 20120716, end: 20120720
  2. EVOLTRA [Suspect]
     Active Substance: CLOFARABINE
     Indication: ACUTE LYMPHOCYTIC LEUKAEMIA RECURRENT
     Route: 042
     Dates: start: 20120716, end: 20120720
  3. CYCLOPHOSPHAMIDE. [Suspect]
     Active Substance: CYCLOPHOSPHAMIDE
     Indication: ACUTE LYMPHOCYTIC LEUKAEMIA RECURRENT
     Dosage: 400 MG/M2, QD
     Route: 065
     Dates: start: 20120716, end: 20120720

REACTIONS (5)
  - Periorbital cellulitis [Recovered/Resolved]
  - Febrile neutropenia [Recovered/Resolved]
  - Hypertransaminasaemia [Recovered/Resolved]
  - Disease progression [Fatal]
  - Pseudomonal sepsis [Recovered/Resolved]

NARRATIVE: CASE EVENT DATE: 20120726
